FAERS Safety Report 22630774 (Version 1)
Quarter: 2023Q2

REPORT INFORMATION
  Report Type: Spontaneous
  Country: US (occurrence: None)
  Receive Date: 20230621
  Receipt Date: 20230621
  Transmission Date: 20230721
  Serious: Yes (Other)
  Sender: FDA-Public Use
  Company Number: None

PATIENT
  Age: 67 Year
  Sex: Female

DRUGS (1)
  1. VIVJOA [Suspect]
     Active Substance: OTESECONAZOLE

REACTIONS (3)
  - Hot flush [None]
  - Abdominal discomfort [None]
  - Headache [None]

NARRATIVE: CASE EVENT DATE: 20230617
